FAERS Safety Report 24243926 (Version 2)
Quarter: 2024Q3

REPORT INFORMATION
  Report Type: Spontaneous
  Country: AR (occurrence: AR)
  Receive Date: 20240823
  Receipt Date: 20240918
  Transmission Date: 20241016
  Serious: Yes (Other)
  Sender: GLAXOSMITHKLINE
  Company Number: AR-GLAXOSMITHKLINE-AR2022AMR025348

PATIENT

DRUGS (2)
  1. NUCALA [Suspect]
     Active Substance: MEPOLIZUMAB
     Indication: Asthma
     Dosage: 100 MG/ML
     Route: 058
     Dates: start: 20200403
  2. NUCALA [Suspect]
     Active Substance: MEPOLIZUMAB
     Dosage: 100 MG, Q4W

REACTIONS (4)
  - Nasal polyps [Recovered/Resolved]
  - Bronchospasm [Recovered/Resolved]
  - Illness [Unknown]
  - Nasal discharge discolouration [Unknown]

NARRATIVE: CASE EVENT DATE: 20240801
